FAERS Safety Report 13299303 (Version 1)
Quarter: 2017Q1

REPORT INFORMATION
  Report Type: Spontaneous
  Country: US (occurrence: US)
  Receive Date: 20170306
  Receipt Date: 20170306
  Transmission Date: 20170428
  Serious: No
  Sender: FDA-Public Use
  Company Number: US-SHIRE-US201704705

PATIENT
  Age: 12 Year
  Sex: Male

DRUGS (1)
  1. VYVANSE [Suspect]
     Active Substance: LISDEXAMFETAMINE DIMESYLATE
     Indication: ATTENTION DEFICIT/HYPERACTIVITY DISORDER
     Dosage: UNK MG, 1X/DAY:QD
     Route: 048
     Dates: start: 2015

REACTIONS (4)
  - Irritability [Unknown]
  - Anxiety [Unknown]
  - Weight decreased [Unknown]
  - Inability to afford medication [Unknown]
